FAERS Safety Report 17018068 (Version 2)
Quarter: 2019Q4

REPORT INFORMATION
  Report Type: Report from Study
  Country: US (occurrence: US)
  Receive Date: 20191111
  Receipt Date: 20191231
  Transmission Date: 20200122
  Serious: Yes (Hospitalization)
  Sender: FDA-Public Use
  Company Number: US-ACTELION-A-NJ2019-196013

PATIENT
  Age: 83 Year
  Sex: Female
  Weight: 77.1 kg

DRUGS (3)
  1. SILDENAFIL CITRATE. [Concomitant]
     Active Substance: SILDENAFIL CITRATE
  2. OPSUMIT [Suspect]
     Active Substance: MACITENTAN
     Indication: PULMONARY HYPERTENSION
     Dosage: 10 MG, QD
     Route: 048
  3. NIFEDIPINE. [Concomitant]
     Active Substance: NIFEDIPINE

REACTIONS (7)
  - Fatigue [Unknown]
  - Cardiac failure congestive [Unknown]
  - Pulmonary hypertension [Unknown]
  - Diarrhoea [Unknown]
  - Abdominal pain upper [Unknown]
  - Renal failure [Unknown]
  - Product dose omission [Unknown]

NARRATIVE: CASE EVENT DATE: 20190915
